FAERS Safety Report 6436462-8 (Version None)
Quarter: 2009Q4

REPORT INFORMATION
  Report Type: 
  Country: None (occurrence: None)
  Receive Date: 20091111
  Receipt Date: 20091103
  Transmission Date: 20100525
  Serious: Yes (Other)
  Sender: FDA-Public Use
  Company Number: BR-ABBOTT-09P-020-0590836-00

PATIENT
  Sex: Female

DRUGS (5)
  1. DEPAKENE [Suspect]
     Indication: CEREBRAL DISORDER
     Route: 048
     Dates: start: 19940101, end: 20090101
  2. DEPAKENE [Suspect]
     Route: 048
     Dates: start: 20090101
  3. CARBAMAZEPINE [Concomitant]
     Indication: DEPRESSION
     Route: 048
     Dates: start: 20081201
  4. FLUOXETINE [Concomitant]
     Indication: DEPRESSION
     Route: 048
     Dates: start: 20081201
  5. NIMODIPINE [Concomitant]
     Indication: DEPRESSION
     Route: 048
     Dates: start: 20081201

REACTIONS (3)
  - CONVULSION [None]
  - DRUG INEFFECTIVE [None]
  - PRODUCT QUALITY ISSUE [None]
